FAERS Safety Report 17957708 (Version 1)
Quarter: 2020Q2

REPORT INFORMATION
  Report Type: Spontaneous
  Country: ES (occurrence: ES)
  Receive Date: 20200629
  Receipt Date: 20200629
  Transmission Date: 20200714
  Serious: Yes (Hospitalization)
  Sender: FDA-Public Use
  Company Number: NVSC2020ES176108

PATIENT
  Age: 67 Year
  Sex: Male
  Weight: 94 kg

DRUGS (12)
  1. ATEZOLIZUMAB. [Suspect]
     Active Substance: ATEZOLIZUMAB
     Indication: NEOPLASM MALIGNANT
     Dosage: 1200 MG, TIW (DATE OF MOST RECENT DOSE OF ATEZOLIZUMAB (1200 MG) PRIOR TO AE/SAE ONSET 31/JAN/2020SU
     Route: 042
     Dates: start: 20190627
  2. AZITROMYCINE [Concomitant]
     Active Substance: AZITHROMYCIN
     Indication: LEUKOCYTOSIS
     Dosage: UNK
     Route: 065
     Dates: start: 20190808
  3. IBUPROFEN. [Concomitant]
     Active Substance: IBUPROFEN
     Indication: COUGH
     Dosage: UNK
     Route: 065
  4. MANIDIPINO [Concomitant]
     Active Substance: MANIDIPINE
     Indication: HYPERTENSION
     Dosage: UNK
     Route: 065
  5. CODEINA [Concomitant]
     Active Substance: CODEINE
     Indication: PRODUCT USED FOR UNKNOWN INDICATION
     Dosage: UNK
     Route: 065
  6. CLORTALIDONA [Concomitant]
     Active Substance: CHLORTHALIDONE
     Indication: HYPERTENSION
     Dosage: UNK
     Route: 065
  7. GLICLAZIDE [Concomitant]
     Active Substance: GLICLAZIDE
     Indication: TYPE 2 DIABETES MELLITUS
     Dosage: UNK
     Route: 065
  8. LEVOFLOXACIN. [Suspect]
     Active Substance: LEVOFLOXACIN
     Indication: LEUKOCYTOSIS
     Dosage: UNK
     Route: 065
     Dates: start: 20190808
  9. VILDAGLIPTIN [Concomitant]
     Active Substance: VILDAGLIPTIN
     Indication: TYPE 2 DIABETES MELLITUS
     Dosage: UNK
     Route: 065
  10. CEFOTAXIME [Suspect]
     Active Substance: CEFOTAXIME SODIUM
     Indication: PRODUCT USED FOR UNKNOWN INDICATION
     Dosage: UNK
     Route: 065
  11. PARACETAMOL [Concomitant]
     Active Substance: ACETAMINOPHEN
     Indication: COUGH
     Dosage: UNK
     Route: 065
  12. LOSARTAN. [Concomitant]
     Active Substance: LOSARTAN
     Indication: HYPERTENSION
     Dosage: UNK
     Route: 065

REACTIONS (1)
  - Pneumonia [Recovered/Resolved]

NARRATIVE: CASE EVENT DATE: 20200219
